FAERS Safety Report 13877969 (Version 1)
Quarter: 2017Q3

REPORT INFORMATION
  Report Type: Spontaneous
  Country: US (occurrence: US)
  Receive Date: 20170817
  Receipt Date: 20170817
  Transmission Date: 20171127
  Serious: Yes (Death, Hospitalization)
  Sender: FDA-Public Use
  Company Number: PHEH2017US025998

PATIENT
  Age: 75 Year
  Sex: Male
  Weight: 81.63 kg

DRUGS (2)
  1. AMIODARONE HYDROCHLORIDE. [Suspect]
     Active Substance: AMIODARONE HYDROCHLORIDE
     Dosage: 1 DF, BID
     Route: 048
     Dates: start: 201603, end: 20160726
  2. AMIODARONE HYDROCHLORIDE. [Suspect]
     Active Substance: AMIODARONE HYDROCHLORIDE
     Indication: ATRIAL FIBRILLATION
     Dosage: 1 DF, QD
     Route: 048
     Dates: start: 201206

REACTIONS (7)
  - Cerebral haemorrhage [Fatal]
  - Pallor [Unknown]
  - Pulmonary embolism [Fatal]
  - Cough [Unknown]
  - Dyspnoea [Not Recovered/Not Resolved]
  - Toxicity to various agents [Fatal]
  - Lung disorder [Unknown]

NARRATIVE: CASE EVENT DATE: 20160717
